FAERS Safety Report 8044355-8 (Version None)
Quarter: 2011Q4

REPORT INFORMATION
  Report Type: 
  Country: None (occurrence: None)
  Receive Date: 20111202
  Receipt Date: 20101129
  Transmission Date: 20120403
  Serious: Yes (Other)
  Sender: FDA-Public Use
  Company Number: 2010SP062307

PATIENT
  Age: 20 Year
  Sex: Female

DRUGS (5)
  1. NUVARING [Suspect]
     Indication: CONTRACEPTION
     Dates: start: 20100201
  2. CINRYZE [Suspect]
     Indication: PROPHYLAXIS
     Dosage: 1000 IU; IV, 1000 IU; QOD; IV
     Route: 042
     Dates: end: 20100401
  3. CINRYZE [Suspect]
     Indication: HEREDITARY ANGIOEDEMA
     Dosage: 1000 IU; IV, 1000 IU; QOD; IV
     Route: 042
     Dates: end: 20100401
  4. CINRYZE [Suspect]
     Indication: PROPHYLAXIS
     Dosage: 1000 IU; IV, 1000 IU; QOD; IV
     Route: 042
     Dates: start: 20100401
  5. CINRYZE [Suspect]
     Indication: HEREDITARY ANGIOEDEMA
     Dosage: 1000 IU; IV, 1000 IU; QOD; IV
     Route: 042
     Dates: start: 20100401

REACTIONS (3)
  - ANGIOEDEMA [None]
  - PAIN IN EXTREMITY [None]
  - ARTHRALGIA [None]
